FAERS Safety Report 8916009 (Version 1)
Quarter: 2012Q4

REPORT INFORMATION
  Report Type: Report from Study
  Country: IN (occurrence: IN)
  Receive Date: 20121119
  Receipt Date: 20121119
  Transmission Date: 20130627
  Serious: Yes (Hospitalization)
  Sender: FDA-Public Use
  Company Number: IN-VIIV HEALTHCARE LIMITED-B0844978A

PATIENT
  Age: 34 Year
  Sex: Female

DRUGS (3)
  1. LAMIVUDINE-HIV [Suspect]
     Indication: HIV TEST POSITIVE
     Route: 065
  2. STAVUDINE [Suspect]
     Indication: HIV TEST POSITIVE
     Route: 065
  3. NEVIRAPINE [Suspect]
     Indication: HIV TEST POSITIVE
     Route: 065

REACTIONS (4)
  - Lactic acidosis [Unknown]
  - Weight decreased [Unknown]
  - Fatigue [Unknown]
  - Decreased appetite [Unknown]
